FAERS Safety Report 9155559 (Version 1)
Quarter: 2013Q1

REPORT INFORMATION
  Report Type: Spontaneous
  Country: US (occurrence: US)
  Receive Date: 20130311
  Receipt Date: 20130311
  Transmission Date: 20140127
  Serious: Yes (Hospitalization)
  Sender: FDA-Public Use
  Company Number: US-GLAXOSMITHKLINE-A1015282A

PATIENT
  Age: 61 Year
  Sex: Female

DRUGS (4)
  1. PROMACTA [Suspect]
     Indication: PRODUCT USED FOR UNKNOWN INDICATION
     Dosage: 75MG PER DAY
     Route: 048
     Dates: start: 20130207
  2. PREDNISONE [Concomitant]
  3. WELLBUTRIN [Concomitant]
  4. RITUXAN [Concomitant]

REACTIONS (5)
  - Urinary tract infection [Recovering/Resolving]
  - Pulmonary embolism [Recovering/Resolving]
  - Flank pain [Recovering/Resolving]
  - Thrombosis [Recovering/Resolving]
  - Chest pain [Recovering/Resolving]
